FAERS Safety Report 5936086-2 (Version None)
Quarter: 2008Q4

REPORT INFORMATION
  Report Type: 
  Country: None (occurrence: None)
  Receive Date: 20081030
  Receipt Date: 20081018
  Transmission Date: 20090506
  Serious: Yes (Other)
  Sender: FDA-Public Use
  Company Number: US-PFIZER INC-2008033179

PATIENT
  Sex: Male

DRUGS (5)
  1. LYRICA [Suspect]
     Indication: PAIN
  2. ALL OTHER THERAPEUTIC PRODUCTS [Suspect]
     Indication: PAIN
  3. OXYCODONE HCL [Suspect]
     Indication: PAIN
  4. DIAZIDE [Suspect]
  5. COUMADIN [Concomitant]

REACTIONS (18)
  - ABDOMINAL DISCOMFORT [None]
  - ABDOMINAL PAIN [None]
  - ABNORMAL DREAMS [None]
  - ANXIETY [None]
  - BALANCE DISORDER [None]
  - BLOOD PRESSURE INCREASED [None]
  - COLONOSCOPY [None]
  - DEAFNESS [None]
  - DEPRESSION [None]
  - EMOTIONAL DISORDER [None]
  - FEELING JITTERY [None]
  - FOLATE DEFICIENCY [None]
  - HEART RATE INCREASED [None]
  - HEART RATE IRREGULAR [None]
  - HERPES ZOSTER [None]
  - PAIN [None]
  - POLYNEUROPATHY [None]
  - POST HERPETIC NEURALGIA [None]
